FAERS Safety Report 4520523-4 (Version None)
Quarter: 2004Q4

REPORT INFORMATION
  Report Type: 
  Country: None (occurrence: None)
  Receive Date: 20041203
  Receipt Date: 20041124
  Transmission Date: 20050328
  Serious: Yes (Life-Threatening, Hospitalization)
  Sender: FDA-Public Use
  Company Number: 2004097639

PATIENT
  Age: 13 Year
  Sex: Female
  Weight: 28 kg

DRUGS (3)
  1. SOMATROPIN (SOMATROPIN) [Suspect]
     Indication: HYPOPITUITARISM
     Dosage: SEE IMAGE
     Route: 058
     Dates: start: 20010620, end: 20030608
  2. SOMATROPIN (SOMATROPIN) [Suspect]
     Indication: HYPOPITUITARISM
     Dosage: SEE IMAGE
     Route: 058
     Dates: start: 20031128
  3. DESMOPRESSIN [Concomitant]

REACTIONS (2)
  - DISEASE PROGRESSION [None]
  - PITUITARY TUMOUR [None]
